FAERS Safety Report 21396744 (Version 1)
Quarter: 2022Q3

REPORT INFORMATION
  Report Type: Spontaneous
  Country: US (occurrence: None)
  Receive Date: 20220930
  Receipt Date: 20220930
  Transmission Date: 20221027
  Serious: No
  Sender: FDA-Public Use
  Company Number: None

PATIENT
  Sex: Female
  Weight: 58.68 kg

DRUGS (4)
  1. DOTTI [Suspect]
     Active Substance: ESTRADIOL
     Indication: Menopausal disorder
     Dosage: OTHER FREQUENCY : TWO TIMES PER WEEK;?
     Route: 062
  2. DOTTI [Suspect]
     Active Substance: ESTRADIOL
     Indication: Menopausal symptoms
  3. MINIVELLE [Suspect]
     Active Substance: ESTRADIOL
     Indication: Menopausal disorder
     Dosage: OTHER FREQUENCY : TWO TIMES PER WEEK;?
     Route: 062
  4. MINIVELLE [Suspect]
     Active Substance: ESTRADIOL
     Indication: Menopausal symptoms

REACTIONS (6)
  - Product substitution issue [None]
  - Hot flush [None]
  - Condition aggravated [None]
  - Insomnia [None]
  - Lower urinary tract symptoms [None]
  - Insurance issue [None]
